FAERS Safety Report 5943851-4 (Version None)
Quarter: 2008Q4

REPORT INFORMATION
  Report Type: 
  Country: None (occurrence: None)
  Receive Date: 20081106
  Receipt Date: 20081024
  Transmission Date: 20090506
  Serious: Yes (Other)
  Sender: FDA-Public Use
  Company Number: BE-ELI_LILLY_AND_COMPANY-BE200807000923

PATIENT
  Sex: Female

DRUGS (7)
  1. FORTEO [Suspect]
     Indication: OSTEOPOROSIS
     Dosage: 20 UG, DAILY (1/D)
     Route: 058
     Dates: start: 20080616
  2. ZYRTEC [Concomitant]
     Dosage: UNK, UNKNOWN
     Route: 065
  3. INDERAL [Concomitant]
     Dosage: UNK, UNKNOWN
     Route: 065
  4. SPIRIVA [Concomitant]
     Dosage: UNK, UNKNOWN
     Route: 065
  5. SYMBICORT [Concomitant]
     Dosage: UNK, UNKNOWN
     Route: 065
  6. EFFEXOR [Concomitant]
  7. PROPRANOLOL [Concomitant]
     Indication: PALPITATIONS
     Dosage: UNK, UNKNOWN
     Route: 065

REACTIONS (5)
  - BURNING SENSATION [None]
  - DYSPNOEA [None]
  - FLUID RETENTION [None]
  - HYPERTENSION [None]
  - INSOMNIA [None]
